FAERS Safety Report 15962315 (Version 1)
Quarter: 2019Q1

REPORT INFORMATION
  Report Type: Spontaneous
  Country: JP (occurrence: JP)
  Receive Date: 20190214
  Receipt Date: 20190214
  Transmission Date: 20190417
  Serious: Yes (Hospitalization, Other)
  Sender: FDA-Public Use
  Company Number: JP-ALLERGAN-1906103US

PATIENT
  Sex: Female

DRUGS (2)
  1. RISEDRONATE SODIUM - BP [Suspect]
     Active Substance: RISEDRONATE SODIUM
     Indication: PRODUCT USED FOR UNKNOWN INDICATION
     Dosage: UNK, Q MONTH
     Route: 048
  2. RISEDRONATE SODIUM - BP [Suspect]
     Active Substance: RISEDRONATE SODIUM
     Dosage: UNK, Q MONTH
     Route: 048
     Dates: start: 2014

REACTIONS (3)
  - Accident [Unknown]
  - Jaw fracture [Unknown]
  - Procedural pain [Unknown]

NARRATIVE: CASE EVENT DATE: 201901
